FAERS Safety Report 24973019 (Version 1)
Quarter: 2025Q1

REPORT INFORMATION
  Report Type: Spontaneous
  Country: PL (occurrence: PL)
  Receive Date: 20250216
  Receipt Date: 20250216
  Transmission Date: 20250409
  Serious: Yes (Life-Threatening)
  Sender: AUROBINDO
  Company Number: PL-URPL-DML-MLP.4401.1.1048.2021

PATIENT
  Age: 61 Year
  Sex: Male
  Weight: 90 kg

DRUGS (1)
  1. QUETIAPINE [Suspect]
     Active Substance: QUETIAPINE
     Indication: Product used for unknown indication
     Route: 048

REACTIONS (4)
  - Nervous system disorder [Recovering/Resolving]
  - Cardiovascular disorder [Recovering/Resolving]
  - Respiratory disorder [Recovering/Resolving]
  - Toxicity to various agents [Recovering/Resolving]
